FAERS Safety Report 9557433 (Version 1)
Quarter: 2013Q3

REPORT INFORMATION
  Report Type: Spontaneous
  Country: US (occurrence: US)
  Receive Date: 20130926
  Receipt Date: 20130926
  Transmission Date: 20140515
  Serious: Yes (Hospitalization)
  Sender: FDA-Public Use
  Company Number: US-ABBVIE-13P-163-1149442-00

PATIENT
  Sex: Male

DRUGS (3)
  1. DEPAKOTE ER [Suspect]
     Indication: BIPOLAR DISORDER
     Route: 048
     Dates: start: 201308
  2. DEPAKOTE ER [Interacting]
     Route: 048
  3. LAMICTAL [Interacting]
     Indication: BIPOLAR DISORDER
     Route: 048
     Dates: start: 201308

REACTIONS (5)
  - Mania [Recovered/Resolved]
  - Amnesia [Not Recovered/Not Resolved]
  - Incorrect dose administered [Unknown]
  - Drug interaction [Not Recovered/Not Resolved]
  - Treatment noncompliance [Not Recovered/Not Resolved]
